FAERS Safety Report 8880210 (Version 1)
Quarter: 2012Q4

REPORT INFORMATION
  Report Type: 
  Country: US (occurrence: US)
  Receive Date: 20121031
  Receipt Date: 20121031
  Transmission Date: 20130627
  Serious: Yes (Other)
  Sender: FDA-Public Use
  Company Number: US-BAYER-2012-111325

PATIENT
  Age: 63 Year
  Sex: Male
  Weight: 83.9 kg

DRUGS (1)
  1. ALEVE CAPLET/TABLET,MIDOL EXTENDED RELIEF CAPLET [Suspect]
     Indication: ARTHRITIS
     Dosage: 1 DF, QD
     Route: 048
     Dates: start: 201208, end: 201210

REACTIONS (5)
  - Cough [None]
  - Oesophageal discomfort [Recovered/Resolved]
  - Pharyngeal oedema [Recovered/Resolved]
  - Increased upper airway secretion [None]
  - Sputum retention [Not Recovered/Not Resolved]
